FAERS Safety Report 15132159 (Version 3)
Quarter: 2018Q3

REPORT INFORMATION
  Report Type: Report from Study
  Country: BR (occurrence: BR)
  Receive Date: 20180711
  Receipt Date: 20180727
  Transmission Date: 20181010
  Serious: Yes (Other)
  Sender: FDA-Public Use
  Company Number: PHHY2018BR037934

PATIENT
  Sex: Male
  Weight: 72 kg

DRUGS (5)
  1. ENALAPRIL MALEATE. [Suspect]
     Active Substance: ENALAPRIL MALEATE
     Indication: PRODUCT USED FOR UNKNOWN INDICATION
     Route: 065
  2. ENTRESTO [Suspect]
     Active Substance: SACUBITRIL\VALSARTAN
     Indication: EJECTION FRACTION DECREASED
  3. ENTRESTO [Suspect]
     Active Substance: SACUBITRIL\VALSARTAN
     Indication: CARDIOVASCULAR EVENT PROPHYLAXIS
     Dosage: 200 MG, BID (SACUBITRIL 97/VALSARTAN 103 MG), 2 TABLETS A DAY
     Route: 048
  4. ENTRESTO [Suspect]
     Active Substance: SACUBITRIL\VALSARTAN
     Indication: CARDIAC DISORDER
  5. SPIRONOLACTONE. [Concomitant]
     Active Substance: SPIRONOLACTONE
     Indication: PRODUCT USED FOR UNKNOWN INDICATION
     Dosage: 1 DF, QD
     Route: 065

REACTIONS (8)
  - Peripheral swelling [Recovering/Resolving]
  - Cardiac disorder [Unknown]
  - Duchenne muscular dystrophy [Unknown]
  - Product use in unapproved indication [Unknown]
  - Cardiac dysfunction [Unknown]
  - Total lung capacity decreased [Unknown]
  - Lung disorder [Unknown]
  - Gait inability [Unknown]
